FAERS Safety Report 3978103 (Version 2)
Quarter: 2018Q2

REPORT INFORMATION
  Report Type: Spontaneous
  Country: GB (occurrence: GB)
  Receive Date: 20030722
  Receipt Date: 20180420
  Transmission Date: 20180711
  Serious: Yes (Other)
  Sender: FDA-Public Use
  Company Number: PHBS2003GB07290

PATIENT
  Age: 66 Year
  Sex: Male

DRUGS (1)
  1. GLIVEC [Suspect]
     Active Substance: IMATINIB MESYLATE
     Indication: CHRONIC MYELOID LEUKAEMIA
     Dosage: UNK
     Route: 048

REACTIONS (7)
  - Dermatosis [Unknown]
  - Malaise [Unknown]
  - Skin exfoliation [Unknown]
  - Chronic myeloid leukaemia [Unknown]
  - Skin toxicity [Unknown]
  - Drug intolerance [Unknown]
  - Malignant neoplasm progression [Unknown]
